FAERS Safety Report 16964256 (Version 1)
Quarter: 2019Q4

REPORT INFORMATION
  Report Type: Spontaneous
  Country: US (occurrence: US)
  Receive Date: 20191025
  Receipt Date: 20191025
  Transmission Date: 20200122
  Serious: Yes (Disabling)
  Sender: FDA-Public Use
  Company Number: None

PATIENT
  Age: 49 Year
  Sex: Female
  Weight: 72 kg

DRUGS (4)
  1. XEOMIN [Suspect]
     Active Substance: INCOBOTULINUMTOXINA
     Indication: SKIN COSMETIC PROCEDURE
     Dosage: ?          OTHER FREQUENCY:ONCE;?
     Route: 030
     Dates: start: 20190912, end: 20190912
  2. VITAMIN D [Concomitant]
     Active Substance: VITAMIN D NOS
  3. CETIRIZINE [Concomitant]
     Active Substance: CETIRIZINE HYDROCHLORIDE
  4. MULTIVITAMIN [Concomitant]
     Active Substance: VITAMINS

REACTIONS (12)
  - Chest discomfort [None]
  - Cough [None]
  - Asthma [None]
  - Ventricular extrasystoles [None]
  - Headache [None]
  - Nausea [None]
  - Hypoaesthesia [None]
  - Pain in extremity [None]
  - Blood pressure fluctuation [None]
  - Decreased appetite [None]
  - Anxiety [None]
  - Palpitations [None]

NARRATIVE: CASE EVENT DATE: 20190912
